FAERS Safety Report 14686095 (Version 5)
Quarter: 2020Q1

REPORT INFORMATION
  Report Type: Spontaneous
  Country: US (occurrence: US)
  Receive Date: 20180327
  Receipt Date: 20200122
  Transmission Date: 20200409
  Serious: Yes (Other)
  Sender: FDA-Public Use
  Company Number: US-PFIZER INC-2018122149

PATIENT
  Age: 73 Year
  Sex: Male
  Weight: 68 kg

DRUGS (4)
  1. DORZOLAMIDE W/TIMOLOL [Concomitant]
     Active Substance: DORZOLAMIDE HYDROCHLORIDE\TIMOLOL MALEATE
     Indication: GLAUCOMA
     Dosage: UNK
     Dates: start: 20150921
  2. BRIMONIDINE [Concomitant]
     Active Substance: BRIMONIDINE TARTRATE
     Indication: INTRAOCULAR PRESSURE TEST ABNORMAL
     Dosage: UNK
     Dates: start: 20170828
  3. VIRTUSSIN [Concomitant]
     Indication: COUGH
     Dosage: UNK
     Dates: start: 20070702
  4. XELJANZ XR [Suspect]
     Active Substance: TOFACITINIB CITRATE
     Indication: RHEUMATOID ARTHRITIS
     Dosage: 11 MG, 1X/DAY (WITH DINNER)
     Route: 048
     Dates: start: 20180215

REACTIONS (6)
  - Nephrolithiasis [Unknown]
  - Fatigue [Recovered/Resolved]
  - Mental impairment [Not Recovered/Not Resolved]
  - Drug dependence [Unknown]
  - Somnolence [Recovered/Resolved]
  - Abnormal dreams [Not Recovered/Not Resolved]

NARRATIVE: CASE EVENT DATE: 201802
